FAERS Safety Report 8585090-7 (Version None)
Quarter: 2012Q3

REPORT INFORMATION
  Report Type: 
  Country: None (occurrence: None)
  Receive Date: 20120810
  Receipt Date: 20120806
  Transmission Date: 20120928
  Serious: Yes (Death)
  Sender: FDA-Public Use
  Company Number: US-BRISTOL-MYERS SQUIBB COMPANY-16839730

PATIENT

DRUGS (1)
  1. YERVOY [Suspect]
     Dosage: 1DF=50MG/10ML, QTY.2 YERVOY 200MG/40ML00003-2328-22,LOT:918609EXP6/2014

REACTIONS (1)
  - DEATH [None]
